FAERS Safety Report 11572764 (Version 1)
Quarter: 2015Q3

REPORT INFORMATION
  Report Type: Spontaneous
  Country: DK (occurrence: GB)
  Receive Date: 20150929
  Receipt Date: 20150929
  Transmission Date: 20151125
  Serious: Yes (Other)
  Sender: FDA-Public Use
  Company Number: GB-FRI-1000079786

PATIENT
  Age: 42 Year
  Sex: Female
  Weight: 59.41 kg

DRUGS (7)
  1. ZOLADEX [Interacting]
     Active Substance: GOSERELIN ACETATE
     Indication: UTERINE LEIOMYOMA
     Route: 051
     Dates: start: 20150107, end: 20150430
  2. FLUOXETINE [Interacting]
     Active Substance: FLUOXETINE\FLUOXETINE HYDROCHLORIDE
     Indication: DEPRESSION
     Dosage: 20 MG
     Route: 065
     Dates: start: 20150327, end: 20150605
  3. CITALOPRAM [Suspect]
     Active Substance: CITALOPRAM HYDROBROMIDE
     Indication: DEPRESSION
     Dosage: 20 MG
     Route: 048
     Dates: start: 20141003, end: 20150203
  4. CITALOPRAM [Interacting]
     Active Substance: CITALOPRAM HYDROBROMIDE
     Dosage: 20 MG DAILY
     Route: 048
     Dates: start: 20150226, end: 20150305
  5. CITALOPRAM [Interacting]
     Active Substance: CITALOPRAM HYDROBROMIDE
     Dosage: 10 MG DAILY
     Route: 048
     Dates: start: 20150305, end: 20150327
  6. CITALOPRAM [Interacting]
     Active Substance: CITALOPRAM HYDROBROMIDE
     Dosage: 30 MG DAILY
     Route: 048
     Dates: start: 20150203, end: 20150226
  7. FLUOXETINE [Interacting]
     Active Substance: FLUOXETINE\FLUOXETINE HYDROCHLORIDE
     Dosage: 40 MG DAILY
     Route: 065
     Dates: start: 20150605

REACTIONS (3)
  - Suicidal ideation [Unknown]
  - Inhibitory drug interaction [Unknown]
  - Depressive symptom [Recovering/Resolving]

NARRATIVE: CASE EVENT DATE: 20150108
